FAERS Safety Report 7763946 (Version 2)
Quarter: 2014Q1

REPORT INFORMATION
  Report Type: Spontaneous
  Country: IT (occurrence: IT)
  Receive Date: 20110118
  Receipt Date: 20140213
  Transmission Date: 20141002
  Serious: Yes (Other)
  Sender: FDA-Public Use
  Company Number: PHHY2011IT01758

PATIENT
  Age: 76 Year
  Sex: Male

DRUGS (2)
  1. FLUOROURACIL EBEWE [Suspect]
     Indication: COLON CANCER STAGE III
     Route: 041
  2. FOLINIC ACID [Suspect]
     Indication: COLON CANCER STAGE III
     Route: 041

REACTIONS (3)
  - Hypersensitivity vasculitis [Recovered/Resolved]
  - Skin lesion [Recovered/Resolved]
  - Pain [Recovered/Resolved]
